FAERS Safety Report 21440244 (Version 1)
Quarter: 2022Q4

REPORT INFORMATION
  Report Type: Spontaneous
  Country: US (occurrence: US)
  Receive Date: 20221011
  Receipt Date: 20221011
  Transmission Date: 20230113
  Serious: No
  Sender: FDA-Public Use
  Company Number: US-AMNEAL PHARMACEUTICALS-2021-AMRX-05388

PATIENT
  Age: 32 Year
  Sex: Female

DRUGS (2)
  1. LIORESAL [Suspect]
     Active Substance: BACLOFEN
     Dosage: 1035 ?G, \DAY
     Route: 037
     Dates: end: 202107
  2. LIORESAL [Suspect]
     Active Substance: BACLOFEN
     Dosage: UNK; INCREASED BY 20%
     Route: 037
     Dates: start: 202107

REACTIONS (2)
  - Muscle spasms [Recovered/Resolved]
  - Therapeutic response decreased [Recovered/Resolved]

NARRATIVE: CASE EVENT DATE: 20210723
